FAERS Safety Report 7497651-7 (Version None)
Quarter: 2011Q2

REPORT INFORMATION
  Report Type: 
  Country: None (occurrence: None)
  Receive Date: 20110523
  Receipt Date: 20110513
  Transmission Date: 20111010
  Serious: Yes (Hospitalization)
  Sender: FDA-Public Use
  Company Number: PHHY2011US41091

PATIENT
  Age: 49 Year
  Sex: Male

DRUGS (1)
  1. DOXYCYCLINE [Suspect]
     Indication: COUGH
     Dosage: UNK UKN, UNK

REACTIONS (21)
  - CORNEAL EPITHELIUM DEFECT [None]
  - ULCERATIVE KERATITIS [None]
  - EYE PAIN [None]
  - PHOTOPHOBIA [None]
  - SCAR [None]
  - SKIN NECROSIS [None]
  - EYE IRRITATION [None]
  - INTRAOCULAR PRESSURE TEST ABNORMAL [None]
  - KERATITIS [None]
  - STEVENS-JOHNSON SYNDROME [None]
  - EPIDERMAL NECROSIS [None]
  - SYMBLEPHARON [None]
  - EYE DISORDER [None]
  - EYELID OEDEMA [None]
  - OCULAR HYPERAEMIA [None]
  - CORNEAL NEOVASCULARISATION [None]
  - IRIS ADHESIONS [None]
  - RASH ERYTHEMATOUS [None]
  - DRUG ERUPTION [None]
  - CONJUNCTIVAL ULCER [None]
  - PIGMENTATION DISORDER [None]
